FAERS Safety Report 4718755-5 (Version None)
Quarter: 2005Q3

REPORT INFORMATION
  Report Type: 
  Country: None (occurrence: None)
  Receive Date: 20050719
  Receipt Date: 20041207
  Transmission Date: 20060218
  Serious: Yes (Other)
  Sender: FDA-Public Use
  Company Number: 2004235827US

PATIENT
  Sex: Male

DRUGS (2)
  1. CELEBREX [Suspect]
     Indication: ARTHRALGIA
     Dosage: 200 MG (UNKNOWN), ORAL
     Route: 048
     Dates: start: 20040918, end: 20040919
  2. CELEBREX [Suspect]
     Indication: SHOULDER PAIN
     Dosage: 200 MG (UNKNOWN), ORAL
     Route: 048
     Dates: start: 20040918, end: 20040919

REACTIONS (6)
  - APHASIA [None]
  - FACIAL PALSY [None]
  - HYPOAESTHESIA [None]
  - PARAESTHESIA [None]
  - SWELLING FACE [None]
  - TRANSIENT ISCHAEMIC ATTACK [None]
